FAERS Safety Report 8302481-X (Version None)
Quarter: 2012Q2

REPORT INFORMATION
  Report Type: 
  Country: None (occurrence: None)
  Receive Date: 20120420
  Receipt Date: 20120410
  Transmission Date: 20120825
  Serious: Yes (Hospitalization)
  Sender: FDA-Public Use
  Company Number: FR-JNJFOC-20110600712

PATIENT
  Age: 51 Year
  Sex: Male
  Weight: 98 kg

DRUGS (10)
  1. NOVORAPID [Concomitant]
     Indication: DIABETES MELLITUS
     Dosage: 18 UNITS MORNINGS, 10U MIDDAY AND 23 U EVENINGS
     Route: 058
  2. COLOFOAM [Concomitant]
  3. VALSARTAN  AND HYDROCHLOROTHIAZIDE [Concomitant]
     Indication: HYPERTENSION
     Route: 048
  4. LERCANIDIPINE [Concomitant]
     Indication: HYPERTENSION
     Route: 048
  5. DIAMICRON [Concomitant]
     Indication: DIABETES MELLITUS
     Route: 048
  6. ATENOLOL [Concomitant]
     Indication: HYPERTENSION
     Route: 048
  7. INFLIXIMAB, RECOMBINANT [Suspect]
     Indication: COLITIS ULCERATIVE
     Route: 042
     Dates: start: 20090529
  8. ATORVASTATIN [Concomitant]
     Indication: DYSLIPIDAEMIA
  9. LANTUS [Concomitant]
     Indication: DIABETES MELLITUS
     Dosage: 34 UNITS MORNINGS, 64 UNITS EVENINGS
     Route: 058
  10. HYPERIUM [Concomitant]
     Indication: HYPERTENSION
     Route: 048

REACTIONS (7)
  - DIABETES MELLITUS [None]
  - DIABETIC RETINOPATHY [None]
  - MYOCARDIAL INFARCTION [None]
  - COLITIS ULCERATIVE [None]
  - CAROTID ARTERIOSCLEROSIS [None]
  - IN-STENT CORONARY ARTERY RESTENOSIS [None]
  - BLOOD PRESSURE INADEQUATELY CONTROLLED [None]
